FAERS Safety Report 5044454-9 (Version None)
Quarter: 2006Q2

REPORT INFORMATION
  Report Type: 
  Country: None (occurrence: None)
  Receive Date: 20060629
  Receipt Date: 20060619
  Transmission Date: 20061013
  Serious: Yes (Disabling, Other)
  Sender: FDA-Public Use
  Company Number: 2006048440

PATIENT
  Age: 57 Year
  Sex: Female
  Weight: 55 kg

DRUGS (7)
  1. SILDENAFIL (PAH) (SILDENAFIL) [Suspect]
     Indication: PULMONARY HYPERTENSION
     Dosage: 50 MG (50 MG, 2 IN 1 D), ORAL
     Route: 048
     Dates: start: 20051215
  2. OMEPRAZOLE [Concomitant]
  3. ACETYLSALICYLIC ACID SRT [Concomitant]
  4. DOCITON (PROPRANOLOL HYDROCHLORIDE) [Concomitant]
  5. LEVOTHYROXINE SODIUM [Concomitant]
  6. PREDNISOLONE [Concomitant]
  7. ALL OTHER THERAPEUTIC PRODUCTS [Concomitant]

REACTIONS (4)
  - ASCITES [None]
  - JOINT EFFUSION [None]
  - OEDEMA PERIPHERAL [None]
  - THERAPY NON-RESPONDER [None]
